FAERS Safety Report 6166271-9 (Version None)
Quarter: 2009Q2

REPORT INFORMATION
  Report Type: 
  Country: None (occurrence: None)
  Receive Date: 20090422
  Receipt Date: 20090422
  Transmission Date: 20091009
  Serious: No
  Sender: FDA-Public Use
  Company Number: None

PATIENT
  Sex: Male

DRUGS (4)
  1. REVLIMID [Suspect]
     Indication: PROSTATE CANCER
     Dosage: 25MG PO QD X 21 DAYS/ 4 WK CYCLE PO
     Route: 048
     Dates: start: 20080915
  2. LUPRON [Concomitant]
  3. LEXAPRO [Concomitant]
  4. REVLIMID [Concomitant]

REACTIONS (2)
  - NEPHROLITHIASIS [None]
  - VENTRICULAR EXTRASYSTOLES [None]
